FAERS Safety Report 5511108-1 (Version None)
Quarter: 2007Q4

REPORT INFORMATION
  Report Type: 
  Country: None (occurrence: None)
  Receive Date: 20071109
  Receipt Date: 20071106
  Transmission Date: 20080405
  Serious: Yes (Death, Other)
  Sender: FDA-Public Use
  Company Number: DE-AVENTIS-200712734DE

PATIENT
  Sex: Male

DRUGS (1)
  1. CLEXANE [Suspect]
     Dosage: DOSE: NOT REPORTED
     Dates: start: 20070101, end: 20070101

REACTIONS (1)
  - PULMONARY EMBOLISM [None]
